FAERS Safety Report 20130447 (Version 1)
Quarter: 2021Q4

REPORT INFORMATION
  Report Type: Spontaneous
  Country: US (occurrence: US)
  Receive Date: 20211130
  Receipt Date: 20211130
  Transmission Date: 20220303
  Serious: Yes (Hospitalization)
  Sender: FDA-Public Use
  Company Number: US-ELI_LILLY_AND_COMPANY-US202111009088

PATIENT
  Sex: Female

DRUGS (1)
  1. HUMALOG [Suspect]
     Active Substance: INSULIN LISPRO
     Indication: Type 2 diabetes mellitus
     Dosage: UNK UNK, UNKNOWN (ON SLIDING SCALE BEFORE MEALS)
     Route: 058
     Dates: start: 2015

REACTIONS (4)
  - Colon cancer [Recovered/Resolved]
  - Myocardial infarction [Recovered/Resolved]
  - Burning sensation [Recovered/Resolved]
  - Memory impairment [Not Recovered/Not Resolved]
